FAERS Safety Report 15808906 (Version 1)
Quarter: 2019Q1

REPORT INFORMATION
  Report Type: Spontaneous
  Country: None (occurrence: FR)
  Receive Date: 20190110
  Receipt Date: 20190110
  Transmission Date: 20190417
  Serious: No
  Sender: FDA-Public Use
  Company Number: FR-B. BRAUN MEDICAL INC.-2061065

PATIENT
  Age: 91 Year
  Sex: Female

DRUGS (2)
  1. LACTATED RINGERS SOLUTION [Suspect]
     Active Substance: CALCIUM CHLORIDE\POTASSIUM CHLORIDE\SODIUM CHLORIDE\SODIUM LACTATE
     Route: 042
  2. NORADRENALINE [Concomitant]
     Active Substance: NOREPINEPHRINE

REACTIONS (2)
  - Injection site erythema [None]
  - Injection site swelling [None]
